FAERS Safety Report 12188501 (Version 3)
Quarter: 2016Q2

REPORT INFORMATION
  Report Type: Report from Study
  Country: US (occurrence: US)
  Receive Date: 20160317
  Receipt Date: 20160518
  Transmission Date: 20160815
  Serious: No
  Sender: FDA-Public Use
  Company Number: US-AMGEN-USASL2016030442

PATIENT
  Age: 78 Year
  Sex: Female

DRUGS (1)
  1. ENBREL [Suspect]
     Active Substance: ETANERCEPT
     Indication: RHEUMATOID ARTHRITIS
     Dosage: 25 MG, EVERY OTHER WEEK
     Route: 065

REACTIONS (13)
  - Eye pruritus [Recovered/Resolved]
  - Joint swelling [Unknown]
  - Ocular hyperaemia [Recovered/Resolved]
  - Eye irritation [Recovered/Resolved]
  - Eye discharge [Not Recovered/Not Resolved]
  - Hypertension [Unknown]
  - Nodule [Unknown]
  - Dry skin [Unknown]
  - Dry eye [Recovered/Resolved]
  - Dyspepsia [Not Recovered/Not Resolved]
  - Intentional product misuse [Unknown]
  - Pollakiuria [Unknown]
  - Gastrooesophageal reflux disease [Not Recovered/Not Resolved]
